FAERS Safety Report 7130171-8 (Version None)
Quarter: 2010Q4

REPORT INFORMATION
  Report Type: 
  Country: None (occurrence: None)
  Receive Date: 20101112
  Receipt Date: 20101019
  Transmission Date: 20110411
  Serious: Yes (Other)
  Sender: FDA-Public Use
  Company Number: 2010080062

PATIENT
  Age: 36 Day

DRUGS (1)
  1. TORASEMIDE (TORASEMIDE) [Suspect]
     Dosage: (0.48 MG/KG/DAY) (1.42 MG/KG/DAY) (0.48 MG/KG/DAY)

REACTIONS (1)
  - HYPERKALAEMIA [None]
